FAERS Safety Report 15020180 (Version 1)
Quarter: 2018Q2

REPORT INFORMATION
  Report Type: Report from Study
  Country: DE (occurrence: DE)
  Receive Date: 20180618
  Receipt Date: 20180618
  Transmission Date: 20180711
  Serious: Yes (Death, Hospitalization, Other)
  Sender: FDA-Public Use
  Company Number: DE-TEVA-2018-DE-908750

PATIENT
  Age: 66 Year
  Sex: Male
  Weight: 97 kg

DRUGS (15)
  1. OXALIPLATIN. [Suspect]
     Active Substance: OXALIPLATIN
     Indication: COLORECTAL CANCER
     Dosage: 214 MILLIGRAM DAILY;
     Route: 042
     Dates: start: 20140107, end: 20140402
  2. BEVACIZUMAB. [Suspect]
     Active Substance: BEVACIZUMAB
     Indication: COLORECTAL CANCER METASTATIC
     Route: 042
     Dates: start: 20140128, end: 20140508
  3. 5-FU [Suspect]
     Active Substance: FLUOROURACIL
     Route: 040
     Dates: start: 20140212, end: 20140305
  4. 5-FU [Suspect]
     Active Substance: FLUOROURACIL
     Indication: COLORECTAL CANCER
     Route: 040
     Dates: start: 20140107, end: 20140128
  5. ALLOPURINOL. [Concomitant]
     Active Substance: ALLOPURINOL
     Dosage: 100 MILLIGRAM DAILY;
     Route: 048
  6. EMEND [Concomitant]
     Active Substance: APREPITANT
     Dosage: 125/80 MG?DAY 1 UNTIL DAY 3 OF CYCLE
     Route: 048
     Dates: start: 20140107
  7. CAPECITABINE. [Suspect]
     Active Substance: CAPECITABINE
     Indication: COLORECTAL CANCER
     Dosage: WITH BEVACIZUMAB
     Route: 048
     Dates: start: 20140508, end: 20140521
  8. BEVACIZUMAB. [Suspect]
     Active Substance: BEVACIZUMAB
     Dosage: MAINTANENCE DOSE
     Route: 042
     Dates: start: 20140226
  9. PANTOPRAZOLE [Concomitant]
     Active Substance: PANTOPRAZOLE
     Dosage: 40 MILLIGRAM DAILY;
     Route: 048
  10. OXALIPLATIN. [Suspect]
     Active Substance: OXALIPLATIN
     Dosage: ON DAY 1 AND 8; EVERY 22 DAYS?WITH BEVACIZUMAB
     Route: 042
     Dates: start: 20140508, end: 20140515
  11. 5-FU [Suspect]
     Active Substance: FLUOROURACIL
     Route: 042
     Dates: start: 20140107, end: 20140402
  12. BEVACIZUMAB. [Suspect]
     Active Substance: BEVACIZUMAB
     Route: 042
     Dates: start: 20130305
  13. BEVACIZUMAB. [Suspect]
     Active Substance: BEVACIZUMAB
     Dosage: WITH CAPECITABINE
     Route: 042
     Dates: start: 20140508, end: 20140508
  14. NEUPOGEN [Concomitant]
     Active Substance: FILGRASTIM
     Route: 065
  15. FOLINIC ACID [Concomitant]
     Active Substance: LEUCOVORIN
     Indication: COLORECTAL CANCER
     Route: 042
     Dates: start: 20140107, end: 20140402

REACTIONS (9)
  - Melaena [Unknown]
  - Polyneuropathy [Fatal]
  - Haemorrhoidal haemorrhage [Unknown]
  - Device related infection [Recovered/Resolved]
  - Vomiting [Unknown]
  - General physical health deterioration [Fatal]
  - Diarrhoea [Unknown]
  - Guillain-Barre syndrome [Unknown]
  - Pyrexia [Recovered/Resolved]

NARRATIVE: CASE EVENT DATE: 20140312
